FAERS Safety Report 18928721 (Version 1)
Quarter: 2021Q1

REPORT INFORMATION
  Report Type: Spontaneous
  Country: DE (occurrence: DE)
  Receive Date: 20210223
  Receipt Date: 20210223
  Transmission Date: 20210420
  Serious: Yes (Death, Hospitalization)
  Sender: FDA-Public Use
  Company Number: DE-STRIDES ARCOLAB LIMITED-2021SP002323

PATIENT
  Age: 80 Year
  Sex: Male

DRUGS (14)
  1. PREDNISOLONE. [Suspect]
     Active Substance: PREDNISOLONE
     Indication: URTICARIA
     Dosage: 150 MILLIGRAM PER DAY, ON THE DAY 2 AND 3
     Route: 048
  2. PREDNISOLONE. [Suspect]
     Active Substance: PREDNISOLONE
     Dosage: 300 MILLIGRAM, ON THE DAY 7
     Route: 048
  3. PREDNISOLONE. [Suspect]
     Active Substance: PREDNISOLONE
     Dosage: 170 MILLIGRAM , ON THE DAY 17
     Route: 065
  4. PREDNISOLONE. [Suspect]
     Active Substance: PREDNISOLONE
     Dosage: 200 MILLIGRAM PER DAY, ON THE DAY 5 AND 6
     Route: 048
  5. PREDNISOLONE. [Suspect]
     Active Substance: PREDNISOLONE
     Dosage: 200 MILLIGRAM PER DAY, GRADUALLY REDUCED BY DAY 16
     Route: 065
  6. CLEMASTINE [Concomitant]
     Active Substance: CLEMASTINE
     Indication: URTICARIA
     Dosage: UNK,  INCREASED DOSES
     Route: 065
  7. KETOTIFEN [Concomitant]
     Active Substance: KETOTIFEN
     Indication: URTICARIA
     Dosage: UNK,  INCREASED DOSES
     Route: 065
  8. DESLORATADIN [Concomitant]
     Active Substance: DESLORATADINE
     Indication: URTICARIA
     Dosage: UNK, TWICE THE RECOMMENDED DAILY DOSE
     Route: 065
  9. PREDNISOLONE. [Suspect]
     Active Substance: PREDNISOLONE
     Dosage: UNK, DOSE OF PREDNISOLONE WAS REDUCED IN SMALL INCREMENTS
     Route: 065
  10. PREDNISOLONE. [Suspect]
     Active Substance: PREDNISOLONE
     Dosage: 350 MILLIGRAM , ON THE DAY 4
     Route: 048
  11. PREDNISOLONE. [Suspect]
     Active Substance: PREDNISOLONE
     Dosage: 40 MILLIGRAM PER DAY, ON THE DAY 29
     Route: 065
  12. PREDNISOLONE. [Suspect]
     Active Substance: PREDNISOLONE
     Dosage: 110 MILLIGRAM , ON THE DAY 23
     Route: 065
  13. PREDNISOLONE. [Suspect]
     Active Substance: PREDNISOLONE
     Dosage: 400 MILLIGRAM PER DAY, ON THE DAY 8 TO 11
     Route: 065
  14. CALCIUM [Concomitant]
     Active Substance: CALCIUM
     Indication: URTICARIA
     Dosage: UNK
     Route: 065

REACTIONS (4)
  - Staphylococcal sepsis [Fatal]
  - Diabetes mellitus [Not Recovered/Not Resolved]
  - Overdose [Unknown]
  - Thrombocytopenia [Not Recovered/Not Resolved]
